FAERS Safety Report 7437713-3 (Version None)
Quarter: 2011Q2

REPORT INFORMATION
  Report Type: 
  Country: None (occurrence: None)
  Receive Date: 20110421
  Receipt Date: 20110421
  Transmission Date: 20111010
  Serious: Yes (Hospitalization)
  Sender: FDA-Public Use
  Company Number: None

PATIENT
  Age: 50 Year
  Sex: Male
  Weight: 100 kg

DRUGS (1)
  1. SIMVASTATIN [Suspect]
     Dosage: 40 MG AT BEDTIME PO
     Route: 048
     Dates: start: 20101207, end: 20110407

REACTIONS (1)
  - RHABDOMYOLYSIS [None]
